FAERS Safety Report 20607621 (Version 1)
Quarter: 2022Q1

REPORT INFORMATION
  Report Type: Spontaneous
  Country: CA (occurrence: CA)
  Receive Date: 20220317
  Receipt Date: 20220317
  Transmission Date: 20220424
  Serious: Yes (Other)
  Sender: FDA-Public Use
  Company Number: CA-BAUSCH-BL-2022-006554

PATIENT
  Sex: Female

DRUGS (1)
  1. RETIN-A MICRO [Suspect]
     Active Substance: TRETINOIN
     Indication: Sunburn
     Dosage: RETIN-A MICRO GEL 0.04% - PUMP 50G (THREE TIMES IN A DAY)
     Route: 061

REACTIONS (1)
  - Blindness transient [Recovering/Resolving]
